FAERS Safety Report 19014156 (Version 1)
Quarter: 2021Q1

REPORT INFORMATION
  Report Type: Spontaneous
  Country: OM (occurrence: OM)
  Receive Date: 20210316
  Receipt Date: 20210316
  Transmission Date: 20210420
  Serious: Yes (Other)
  Sender: FDA-Public Use
  Company Number: NVSC2021OM057334

PATIENT
  Sex: Male

DRUGS (1)
  1. CIPROFLOXACIN. [Suspect]
     Active Substance: CIPROFLOXACIN
     Indication: PRODUCT USED FOR UNKNOWN INDICATION
     Dosage: UNK UNK, UNKNOWN
     Route: 065

REACTIONS (7)
  - Poor peripheral circulation [Unknown]
  - Decreased activity [Unknown]
  - Irritability [Unknown]
  - Dyspnoea [Unknown]
  - Respiratory distress [Unknown]
  - Cyanosis [Unknown]
  - Tachycardia [Unknown]
